FAERS Safety Report 18682771 (Version 1)
Quarter: 2020Q4

REPORT INFORMATION
  Report Type: Other
  Country: US (occurrence: US)
  Receive Date: 20201230
  Receipt Date: 20201230
  Transmission Date: 20210114
  Serious: Yes (Other)
  Sender: FDA-Public Use
  Company Number: US-ROCHE-2740470

PATIENT

DRUGS (10)
  1. MYCOPHENOLATE MOFETIL. [Suspect]
     Active Substance: MYCOPHENOLATE MOFETIL
     Indication: INFLAMMATORY BOWEL DISEASE
  2. TACROLIMUS. [Suspect]
     Active Substance: TACROLIMUS
     Indication: CHOLANGITIS SCLEROSING
  3. AZATHIOPRINE. [Suspect]
     Active Substance: AZATHIOPRINE
     Indication: CHOLANGITIS SCLEROSING
  4. MYCOPHENOLATE MOFETIL. [Suspect]
     Active Substance: MYCOPHENOLATE MOFETIL
     Indication: CHOLANGITIS SCLEROSING
     Route: 065
  5. CYCLOSPORINE. [Suspect]
     Active Substance: CYCLOSPORINE
     Indication: INFLAMMATORY BOWEL DISEASE
  6. TACROLIMUS. [Suspect]
     Active Substance: TACROLIMUS
     Indication: INFLAMMATORY BOWEL DISEASE
     Route: 065
  7. AZATHIOPRINE. [Suspect]
     Active Substance: AZATHIOPRINE
     Indication: INFLAMMATORY BOWEL DISEASE
     Route: 065
  8. INFLIXIMAB [Suspect]
     Active Substance: INFLIXIMAB
     Indication: CHOLANGITIS SCLEROSING
     Route: 065
  9. CYCLOSPORINE. [Suspect]
     Active Substance: CYCLOSPORINE
     Indication: CHOLANGITIS SCLEROSING
     Route: 065
  10. INFLIXIMAB [Suspect]
     Active Substance: INFLIXIMAB
     Indication: INFLAMMATORY BOWEL DISEASE

REACTIONS (6)
  - Diabetes mellitus [Unknown]
  - Renal failure [Unknown]
  - Hypertension [Unknown]
  - Clostridium difficile infection [Unknown]
  - Cytomegalovirus infection [Unknown]
  - Transplant dysfunction [Unknown]
